FAERS Safety Report 7773250-4 (Version None)
Quarter: 2011Q3

REPORT INFORMATION
  Report Type: 
  Country: None (occurrence: None)
  Receive Date: 20110922
  Receipt Date: 20110909
  Transmission Date: 20111222
  Serious: Yes (Other)
  Sender: FDA-Public Use
  Company Number: GB-MYLANLABS-2011S1018868

PATIENT
  Age: 66 Year
  Sex: Female

DRUGS (2)
  1. NIZATIDINE [Suspect]
     Indication: GASTRITIS
     Route: 048
  2. AMLODIPINE [Suspect]
     Indication: BLOOD PRESSURE

REACTIONS (4)
  - DYSPNOEA [None]
  - PALPITATIONS [None]
  - ARRHYTHMIA [None]
  - FATIGUE [None]
